FAERS Safety Report 10653169 (Version 2)
Quarter: 2015Q1

REPORT INFORMATION
  Report Type: Spontaneous
  Country: BE (occurrence: BE)
  Receive Date: 20141215
  Receipt Date: 20150112
  Transmission Date: 20150720
  Serious: Yes (Other)
  Sender: FDA-Public Use
  Company Number: BE-GLAXOSMITHKLINE-BE2014GSK035321

PATIENT
  Age: 50 Year
  Sex: Female
  Weight: 66 kg

DRUGS (2)
  1. LAMBIPOL [Suspect]
     Active Substance: LAMOTRIGINE
     Indication: BIPOLAR DISORDER
     Dosage: 25 MG, QD
     Dates: start: 20141129, end: 20141213
  2. LITHIUM [Concomitant]
     Active Substance: LITHIUM CARBONATE
     Indication: BIPOLAR DISORDER
     Dosage: 100 MG, QD

REACTIONS (2)
  - Systemic lupus erythematosus [Recovered/Resolved]
  - Rash maculo-papular [Recovered/Resolved]

NARRATIVE: CASE EVENT DATE: 20141210
